FAERS Safety Report 21362792 (Version 1)
Quarter: 2022Q3

REPORT INFORMATION
  Report Type: Report from Study
  Country: US (occurrence: US)
  Receive Date: 20220922
  Receipt Date: 20220922
  Transmission Date: 20221026
  Serious: Yes (Hospitalization, Other)
  Sender: FDA-Public Use
  Company Number: US-ALNYLAM PHARMACEUTICALS, INC.-ALN-2022-003282

PATIENT

DRUGS (1)
  1. GIVLAARI [Suspect]
     Active Substance: GIVOSIRAN SODIUM
     Indication: Porphyria acute
     Dosage: 164.77 MILLIGRAM, MONTHLY
     Route: 058
     Dates: start: 20210101

REACTIONS (4)
  - Porphyria acute [Unknown]
  - Condition aggravated [Unknown]
  - Weight fluctuation [Unknown]
  - Product dose omission issue [Unknown]
